FAERS Safety Report 19747895 (Version 1)
Quarter: 2021Q3

REPORT INFORMATION
  Report Type: Spontaneous
  Country: US (occurrence: US)
  Receive Date: 20210823
  Receipt Date: 20210823
  Transmission Date: 20211014
  Serious: No
  Sender: FDA-Public Use
  Company Number: None

PATIENT
  Sex: Female

DRUGS (1)
  1. VERZENIO [Suspect]
     Active Substance: ABEMACICLIB
     Indication: BREAST CANCER
     Dosage: 100MG TAKE 1 TABLET BY MOUTH ORAL?TO ON HOLD
     Route: 048
     Dates: start: 20210706

REACTIONS (2)
  - Therapy interrupted [None]
  - Surgery [None]
